FAERS Safety Report 6213892-0 (Version None)
Quarter: 2009Q2

REPORT INFORMATION
  Report Type: 
  Country: None (occurrence: None)
  Receive Date: 20090602
  Receipt Date: 20090602
  Transmission Date: 20091009
  Serious: Yes (Life-Threatening, Other)
  Sender: FDA-Public Use
  Company Number: None

PATIENT
  Sex: Male
  Weight: 102.0593 kg

DRUGS (3)
  1. STADOL [Suspect]
     Indication: MUSCLE SPASMS
     Dosage: 4 MG ONE TIME IM
     Route: 030
     Dates: start: 20090529, end: 20090529
  2. STADOL [Suspect]
     Indication: NECK PAIN
     Dosage: 4 MG ONE TIME IM
     Route: 030
     Dates: start: 20090529, end: 20090529
  3. PHENERGAN [Suspect]

REACTIONS (5)
  - CONSTIPATION [None]
  - DYSPHORIA [None]
  - DYSURIA [None]
  - NAUSEA [None]
  - RESPIRATORY DISTRESS [None]
